FAERS Safety Report 4939149-3 (Version None)
Quarter: 2006Q1

REPORT INFORMATION
  Report Type: 
  Country: None (occurrence: None)
  Receive Date: 20060306
  Receipt Date: 20060222
  Transmission Date: 20060701
  Serious: Yes (Other)
  Sender: FDA-Public Use
  Company Number: 2006026605

PATIENT
  Age: 47 Year
  Sex: Female

DRUGS (4)
  1. LYRICA [Suspect]
     Indication: PAIN
     Dosage: UNKNOWN, ORAL
     Route: 048
     Dates: start: 20051101, end: 20060101
  2. DIAZEPAM [Concomitant]
  3. MELOXICAM (MELOXICAM) [Concomitant]
  4. SUMATRIPTAN SUCCINATE [Concomitant]

REACTIONS (3)
  - CONJUNCTIVAL HAEMORRHAGE [None]
  - HEADACHE [None]
  - SOMNOLENCE [None]
